FAERS Safety Report 9034130 (Version 1)
Quarter: 2013Q1

REPORT INFORMATION
  Report Type: Spontaneous
  Country: US (occurrence: None)
  Receive Date: 20130116
  Receipt Date: 20130116
  Transmission Date: 20140127
  Serious: Yes (Other)
  Sender: FDA-Public Use
  Company Number: None

PATIENT
  Age: 69 Year
  Sex: Female
  Weight: 55.79 kg

DRUGS (1)
  1. SUPARTZ [Suspect]
     Dosage: 1 INJECTION IN EACH KNEE WEEKLY FOR 5 WEEKS
     Dates: start: 20121227, end: 20130101

REACTIONS (2)
  - Swelling [None]
  - Pain [None]
